FAERS Safety Report 23643011 (Version 1)
Quarter: 2024Q1

REPORT INFORMATION
  Report Type: Spontaneous
  Country: US (occurrence: US)
  Receive Date: 20240318
  Receipt Date: 20240318
  Transmission Date: 20240410
  Serious: No
  Sender: FDA-Public Use
  Company Number: US-PFIZER INC-202400064863

PATIENT
  Age: 81 Year
  Sex: Male
  Weight: 90.72 kg

DRUGS (1)
  1. LORAZEPAM [Suspect]
     Active Substance: LORAZEPAM
     Indication: Depression
     Dosage: 0.5 MG, 1X/DAY

REACTIONS (3)
  - Cerebral disorder [Unknown]
  - Malaise [Unknown]
  - Off label use [Unknown]
